FAERS Safety Report 4751429-3 (Version None)
Quarter: 2005Q3

REPORT INFORMATION
  Report Type: 
  Country: None (occurrence: None)
  Receive Date: 20050824
  Receipt Date: 20050817
  Transmission Date: 20060218
  Serious: Yes (Other)
  Sender: FDA-Public Use
  Company Number: 200516268US

PATIENT
  Sex: Female

DRUGS (2)
  1. LOVENOX [Suspect]
     Indication: THROMBOSIS PROPHYLAXIS
     Dosage: DOSE: UNK
  2. COUMADIN [Concomitant]
     Dosage: DOSE: UNK

REACTIONS (4)
  - OPERATIVE HAEMORRHAGE [None]
  - SPLENECTOMY [None]
  - SPLENIC HAEMORRHAGE [None]
  - THROMBOSIS [None]
